FAERS Safety Report 6449207-2 (Version None)
Quarter: 2009Q4

REPORT INFORMATION
  Report Type: 
  Country: None (occurrence: None)
  Receive Date: 20091120
  Receipt Date: 20091116
  Transmission Date: 20100525
  Serious: Yes (Life-Threatening, Hospitalization)
  Sender: FDA-Public Use
  Company Number: PHHY2009DE50694

PATIENT
  Sex: Female
  Weight: 133 kg

DRUGS (14)
  1. ALISKIREN ALI+ [Suspect]
     Indication: HYPERTENSION
     Dosage: 300 MG PER DAY
     Dates: start: 20080824, end: 20090101
  2. BAYOTENSIN [Concomitant]
     Indication: HYPERTENSION
     Dosage: UNK
     Dates: end: 20080824
  3. AMLODIPINE [Concomitant]
     Indication: HYPERTENSION
     Dosage: 10 MG PER DAY
     Dates: start: 20090201
  4. XIPAMIDE [Concomitant]
     Indication: HYPERTENSION
     Dosage: 40 MG PER DAY
     Dates: end: 20080824
  5. SPIRO COMP. [Concomitant]
     Indication: HYPERTENSION
     Dosage: 100 MG PER DAY
     Dates: end: 20080824
  6. SPIRO COMP. [Concomitant]
     Dosage: 100 MG PER DAY
     Dates: start: 20090101
  7. MOXONIDINE [Concomitant]
     Indication: HYPERTENSION
     Dosage: 2 MG PER DAY
     Dates: start: 20090201
  8. METOPROLOL TARTRATE [Concomitant]
     Indication: HYPERTENSION
     Dosage: 200 MG PER DAY
     Dates: start: 20020801
  9. CIBADREX [Concomitant]
     Indication: HYPERTENSION
     Dosage: 10 MG PER DAY
     Dates: start: 20010501
  10. KERLONE [Concomitant]
     Indication: HYPERTENSION
     Dosage: 20 MG PER DAY
     Dates: end: 20080824
  11. DIGITOXIN INJ [Concomitant]
     Indication: HYPERTENSION
     Dosage: 7 MG PER DAY
  12. FUROSEMIDE [Concomitant]
     Indication: HYPERTENSION
     Dosage: 40 MG PER DAY
     Dates: end: 20080824
  13. TORSEMIDE [Concomitant]
     Indication: HYPERTENSION
     Dosage: 15 MG PER DAY
     Dates: start: 20090201
  14. HYDROCHLOROTHIAZIDE [Concomitant]
     Indication: HYPERTENSION
     Dosage: 25 MG PER DAY
     Dates: end: 20080824

REACTIONS (1)
  - RENAL FAILURE [None]
